APPROVED DRUG PRODUCT: DIPYRIDAMOLE
Active Ingredient: DIPYRIDAMOLE
Strength: 25MG
Dosage Form/Route: TABLET;ORAL
Application: A040874 | Product #001 | TE Code: AB
Applicant: ZYDUS PHARMACEUTICALS USA INC
Approved: Jan 28, 2008 | RLD: No | RS: No | Type: RX